FAERS Safety Report 8271879-0 (Version None)
Quarter: 2012Q1

REPORT INFORMATION
  Report Type: 
  Country: None (occurrence: None)
  Receive Date: 20120321
  Receipt Date: 20110517
  Transmission Date: 20120608
  Serious: Yes (Hospitalization)
  Sender: FDA-Public Use
  Company Number: 2011SP022640

PATIENT
  Age: 49 Year
  Sex: Female

DRUGS (3)
  1. REBETOL [Suspect]
     Indication: HEPATITIS C
  2. ZIDOVUDINE [Suspect]
     Indication: HIV INFECTION
  3. PEG-INTRON [Suspect]
     Indication: HEPATITIS C

REACTIONS (1)
  - ANAEMIA [None]
